FAERS Safety Report 8838769 (Version 1)
Quarter: 2012Q4

REPORT INFORMATION
  Report Type: 
  Country: US (occurrence: US)
  Receive Date: 20121013
  Receipt Date: 20121013
  Transmission Date: 20130627
  Serious: Yes (Hospitalization)
  Sender: FDA-Public Use
  Company Number: US-AMGEN-USASP2012064245

PATIENT
  Age: 83 Year
  Sex: Female

DRUGS (2)
  1. ARANESP [Suspect]
     Indication: HAEMOGLOBIN DECREASED
     Dosage: UNK
     Dates: start: 20120625
  2. TYLENOL /00020001/ [Concomitant]
     Indication: PAIN IN EXTREMITY

REACTIONS (5)
  - Dyspnoea [Unknown]
  - Pain [Unknown]
  - Hypoaesthesia [Unknown]
  - Oedema peripheral [Unknown]
  - Pain in extremity [Unknown]
